FAERS Safety Report 12868982 (Version 9)
Quarter: 2018Q4

REPORT INFORMATION
  Report Type: Spontaneous
  Country: US (occurrence: US)
  Receive Date: 20161021
  Receipt Date: 20181210
  Transmission Date: 20190204
  Serious: No
  Sender: FDA-Public Use
  Company Number: US-PFIZER INC-2016491199

PATIENT
  Age: 57 Year
  Sex: Male
  Weight: 70.31 kg

DRUGS (3)
  1. GENOTROPIN MQ [Suspect]
     Active Substance: SOMATROPIN
     Indication: HYPOTHALAMO-PITUITARY DISORDER
     Dosage: 0.2 MG, ONCE AT NIGHT
     Dates: start: 1997
  2. GENOTROPIN MQ [Suspect]
     Active Substance: SOMATROPIN
     Dosage: 0.2 MG, DAILY
     Dates: start: 20010928
  3. GENOTROPIN MQ [Suspect]
     Active Substance: SOMATROPIN
     Dosage: 0.4 MG, DAILY

REACTIONS (9)
  - Blood cholesterol increased [Unknown]
  - Non-high-density lipoprotein cholesterol increased [Unknown]
  - Product dose omission [Unknown]
  - Malaise [Unknown]
  - Influenza [Unknown]
  - Low density lipoprotein increased [Unknown]
  - Nasopharyngitis [Unknown]
  - Arthralgia [Unknown]
  - Fatigue [Unknown]
